FAERS Safety Report 4704139-2 (Version None)
Quarter: 2005Q2

REPORT INFORMATION
  Report Type: 
  Country: None (occurrence: None)
  Receive Date: 20050629
  Receipt Date: 20050623
  Transmission Date: 20051028
  Serious: Yes (Hospitalization, Other)
  Sender: FDA-Public Use
  Company Number: ITWYE703630MAY05

PATIENT
  Age: 24 Year
  Sex: Male

DRUGS (2)
  1. RAPAMUNE [Suspect]
     Indication: PROPHYLAXIS AGAINST TRANSPLANT REJECTION
     Dosage: SEE IMAGE
     Dates: start: 20050405, end: 20050527
  2. RAPAMUNE [Suspect]
     Indication: PROPHYLAXIS AGAINST TRANSPLANT REJECTION
     Dosage: SEE IMAGE
     Dates: start: 20050528

REACTIONS (4)
  - IMMUNOSUPPRESSION [None]
  - KIDNEY ENLARGEMENT [None]
  - KIDNEY TRANSPLANT REJECTION [None]
  - THERAPEUTIC RESPONSE DECREASED [None]
